FAERS Safety Report 9726755 (Version 1)
Quarter: 2013Q4

REPORT INFORMATION
  Report Type: Spontaneous
  Country: US (occurrence: US)
  Receive Date: 20131203
  Receipt Date: 20131203
  Transmission Date: 20140711
  Serious: Yes (Other)
  Sender: FDA-Public Use
  Company Number: PHEH2013US024988

PATIENT
  Sex: Male

DRUGS (7)
  1. EXFORGE [Suspect]
     Dosage: 1 DF, (160 MG VALS AND 5 MG AMLO)
  2. ATENOLOL [Concomitant]
  3. VICTOZA [Concomitant]
  4. ZYLOPRIM [Concomitant]
  5. REPLENATE [Concomitant]
  6. ECOTRIN [Concomitant]
  7. GLUCOPHAGE [Concomitant]

REACTIONS (1)
  - Deafness unilateral [Unknown]
